FAERS Safety Report 8923395 (Version 1)
Quarter: 2012Q4

REPORT INFORMATION
  Report Type: 
  Country: DE (occurrence: DE)
  Receive Date: 20121123
  Receipt Date: 20121123
  Transmission Date: 20130627
  Serious: Yes (Other)
  Sender: FDA-Public Use
  Company Number: PHHY2012DE085268

PATIENT
  Sex: Male
  Weight: 120 kg

DRUGS (13)
  1. SANDIMMUN / NEORAL/ OL 27-400/ OLO 400 [Suspect]
     Indication: PEMPHIGOID
     Dosage: 100 mg, TID
     Route: 048
     Dates: start: 201209
  2. SANDIMMUN / NEORAL/ OL 27-400/ OLO 400 [Suspect]
     Indication: RASH PAPULAR
  3. EUCREAS [Concomitant]
  4. KARVEZIDE [Concomitant]
  5. OBSIDAN [Concomitant]
  6. MAXALT [Concomitant]
  7. DUSPATAL [Concomitant]
  8. AGGRENOX [Concomitant]
  9. SIMVASTATIN [Concomitant]
  10. AERIUS [Concomitant]
  11. PANTOPRAZOLE [Concomitant]
  12. TAMSULOSIN [Concomitant]
  13. SERTRALINE [Concomitant]

REACTIONS (7)
  - Accident [Unknown]
  - Joint injury [Unknown]
  - Pain [Unknown]
  - Headache [Not Recovered/Not Resolved]
  - Nausea [Not Recovered/Not Resolved]
  - Vomiting [Not Recovered/Not Resolved]
  - Drug interaction [None]
